FAERS Safety Report 4283310-0 (Version None)
Quarter: 2004Q1

REPORT INFORMATION
  Report Type: 
  Country: None (occurrence: None)
  Receive Date: 20040129
  Receipt Date: 20030730
  Transmission Date: 20041129
  Serious: Yes (Hospitalization)
  Sender: FDA-Public Use
  Company Number: 2003031196

PATIENT
  Sex: Male
  Weight: 75 kg

DRUGS (6)
  1. ZELDOX (CAPSULES) (ZIPRASIDONE) [Suspect]
     Indication: MENTAL DISORDER
     Dosage: 80 MG (BID), ORAL
     Route: 048
     Dates: start: 20030716, end: 20030719
  2. ZELDOX (CAPSULES) (ZIPRASIDONE) [Suspect]
     Indication: PSYCHOTIC DISORDER
     Dosage: 80 MG (BID), ORAL
     Route: 048
     Dates: start: 20030716, end: 20030719
  3. QUETIAPINE FUMARATE (QUETIAPINE FUMARATE) [Concomitant]
  4. LEVOMEPROMAZINE (LEVOMEPROMAZINE) [Concomitant]
  5. CLONAZEPAM [Concomitant]
  6. SALBUTAMOL (SALBUTAMOL) [Concomitant]

REACTIONS (3)
  - ANXIETY [None]
  - PALPITATIONS [None]
  - SINUS TACHYCARDIA [None]
